FAERS Safety Report 7194007-1 (Version None)
Quarter: 2010Q4

REPORT INFORMATION
  Report Type: 
  Country: None (occurrence: None)
  Receive Date: 20101124
  Receipt Date: 20100810
  Transmission Date: 20110411
  Serious: No
  Sender: FDA-Public Use
  Company Number: 016996

PATIENT
  Age: 77 Year
  Sex: Female

DRUGS (1)
  1. LACOSAMIDE [Suspect]
     Dosage: (10 MG BID)
     Dates: start: 20100101

REACTIONS (2)
  - DIZZINESS [None]
  - FATIGUE [None]
